FAERS Safety Report 6768566-4 (Version None)
Quarter: 2010Q2

REPORT INFORMATION
  Report Type: 
  Country: None (occurrence: None)
  Receive Date: 20100614
  Receipt Date: 20100604
  Transmission Date: 20101027
  Serious: Yes (Other)
  Sender: FDA-Public Use
  Company Number: JP-PFIZER INC-2010069520

PATIENT
  Sex: Female

DRUGS (1)
  1. SOLANAX [Suspect]
     Dosage: UNK, 3 X/DAY FOR YEARS
     Route: 048

REACTIONS (1)
  - ANGLE CLOSURE GLAUCOMA [None]
